FAERS Safety Report 6936215-8 (Version None)
Quarter: 2010Q3

REPORT INFORMATION
  Report Type: 
  Country: None (occurrence: None)
  Receive Date: 20100823
  Receipt Date: 20100811
  Transmission Date: 20110219
  Serious: Yes (Other)
  Sender: FDA-Public Use
  Company Number: US-PFIZER INC-2010101438

PATIENT
  Sex: Male

DRUGS (1)
  1. CHANTIX [Suspect]
     Dosage: UNK
     Route: 048
     Dates: start: 20070701

REACTIONS (7)
  - ANXIETY [None]
  - DELUSION [None]
  - DEPRESSION [None]
  - HOSTILITY [None]
  - INTENTIONAL OVERDOSE [None]
  - PARANOIA [None]
  - SUICIDE ATTEMPT [None]
